FAERS Safety Report 5856171-3 (Version None)
Quarter: 2008Q3

REPORT INFORMATION
  Report Type: 
  Country: None (occurrence: None)
  Receive Date: 20080825
  Receipt Date: 20080821
  Transmission Date: 20090109
  Serious: Yes (Other)
  Sender: FDA-Public Use
  Company Number: A0704187A

PATIENT
  Age: 56 Year
  Sex: Female
  Weight: 63.6 kg

DRUGS (7)
  1. AVANDIA [Suspect]
     Dosage: 4MG TWICE PER DAY
     Route: 048
     Dates: start: 20060328
  2. AVANDAMET [Suspect]
     Dosage: 2MG TWICE PER DAY
     Route: 048
     Dates: start: 20030601, end: 20060301
  3. METFORMIN [Concomitant]
     Dates: start: 20060328
  4. LENTE [Concomitant]
     Dates: start: 20020118, end: 20031001
  5. LANTUS [Concomitant]
     Dates: start: 20031001
  6. VIOXX [Concomitant]
     Dates: start: 20030329
  7. MOBIC [Concomitant]

REACTIONS (7)
  - ANXIETY [None]
  - CARDIAC FAILURE CONGESTIVE [None]
  - CORONARY ARTERY DISEASE [None]
  - DYSPEPSIA [None]
  - HYPERTENSION [None]
  - MYOCARDIAL INFARCTION [None]
  - PAIN [None]
